FAERS Safety Report 14580162 (Version 3)
Quarter: 2018Q2

REPORT INFORMATION
  Report Type: Report from Study
  Country: None (occurrence: US)
  Receive Date: 20180228
  Receipt Date: 20180425
  Transmission Date: 20180711
  Serious: Yes (Hospitalization, Other)
  Sender: FDA-Public Use
  Company Number: US-ABBVIE-18K-163-2264467-00

PATIENT
  Age: 48 Year
  Sex: Male

DRUGS (3)
  1. HUMIRA [Suspect]
     Active Substance: ADALIMUMAB
     Indication: RHEUMATOID ARTHRITIS
     Route: 058
     Dates: end: 2017
  2. HUMIRA [Suspect]
     Active Substance: ADALIMUMAB
     Route: 058
     Dates: start: 2018
  3. METHOTREXATE. [Suspect]
     Active Substance: METHOTREXATE
     Indication: PRODUCT USED FOR UNKNOWN INDICATION
     Route: 065
     Dates: end: 2017

REACTIONS (18)
  - Latent autoimmune diabetes in adults [Recovering/Resolving]
  - Ankylosing spondylitis [Unknown]
  - Tracheal injury [Unknown]
  - Psoriatic arthropathy [Unknown]
  - Cholecystectomy [Unknown]
  - Autoimmune arthritis [Unknown]
  - Psoriasis [Recovered/Resolved]
  - Loss of consciousness [Unknown]
  - Gastrooesophageal reflux disease [Unknown]
  - Oesophageal injury [Unknown]
  - Alopecia [Unknown]
  - Fungal skin infection [Unknown]
  - Rheumatoid arthritis [Not Recovered/Not Resolved]
  - Loose body in joint [Not Recovered/Not Resolved]
  - Swelling [Unknown]
  - Fungal sepsis [Unknown]
  - Arthralgia [Unknown]
  - Urticaria [Recovering/Resolving]

NARRATIVE: CASE EVENT DATE: 201607
